FAERS Safety Report 7064926-5 (Version None)
Quarter: 2010Q4

REPORT INFORMATION
  Report Type: 
  Country: None (occurrence: None)
  Receive Date: 20101027
  Receipt Date: 20101026
  Transmission Date: 20110411
  Serious: Yes (Death, Hospitalization)
  Sender: FDA-Public Use
  Company Number: HR-PFIZER INC-2010135848

PATIENT
  Age: 75 Year
  Sex: Female
  Weight: 62 kg

DRUGS (4)
  1. NORVASC [Suspect]
     Dosage: 5 MG, UNK
     Route: 048
     Dates: start: 20080609, end: 20080619
  2. TRITAZIDE [Suspect]
     Dosage: 25 MG, UNK
     Dates: start: 20080609, end: 20080619
  3. LANZUL [Suspect]
     Dosage: 30 MG, UNK
     Dates: start: 20080609, end: 20080619
  4. CONCOR [Suspect]
     Dosage: UNK
     Dates: start: 20080609, end: 20080619

REACTIONS (1)
  - STEVENS-JOHNSON SYNDROME [None]
